FAERS Safety Report 4320728-1 (Version None)
Quarter: 2004Q1

REPORT INFORMATION
  Report Type: 
  Country: None (occurrence: None)
  Receive Date: 20040315
  Receipt Date: 20040202
  Transmission Date: 20041129
  Serious: No
  Sender: FDA-Public Use
  Company Number: 2004197332US

PATIENT
  Age: 84 Year
  Sex: Female

DRUGS (4)
  1. BEXTRA [Suspect]
     Indication: OSTEOARTHRITIS
     Dosage: 10 MG, QD
     Dates: start: 20040130
  2. PRINIVIL [Concomitant]
  3. LASIX [Concomitant]
  4. ASPIRIN [Concomitant]

REACTIONS (9)
  - ABDOMINAL DISTENSION [None]
  - FATIGUE [None]
  - FLUID RETENTION [None]
  - HUNGER [None]
  - IRRITABILITY [None]
  - MUSCLE CRAMP [None]
  - NAUSEA [None]
  - SLEEP DISORDER [None]
  - WEIGHT INCREASED [None]
